FAERS Safety Report 7288077-X (Version None)
Quarter: 2011Q1

REPORT INFORMATION
  Report Type: 
  Country: None (occurrence: None)
  Receive Date: 20110211
  Receipt Date: 20110208
  Transmission Date: 20110831
  Serious: Yes (Death, Other)
  Sender: FDA-Public Use
  Company Number: PHFR2011GB00854

PATIENT
  Sex: Female

DRUGS (6)
  1. CLOZARIL [Suspect]
     Indication: SCHIZOPHRENIA
     Dosage: UNK MG, UNK
     Route: 048
     Dates: start: 19990126
  2. SERTRALINE [Concomitant]
     Indication: DEPRESSION
     Dosage: 50 MG, UNK
     Route: 048
  3. LANSOPRAZOLE [Concomitant]
     Dosage: UNK DF, UNK
     Route: 048
  4. FERROUS SULFATE TAB [Concomitant]
     Dosage: UNK DF, UNK
     Route: 048
  5. CLOZARIL [Suspect]
     Dosage: 550 MG, UNK
     Route: 048
  6. LORAZEPAM [Concomitant]
     Indication: ANXIETY
     Dosage: 1 MG, UNK
     Route: 048

REACTIONS (4)
  - MEAN CELL VOLUME INCREASED [None]
  - SEPSIS [None]
  - BRONCHOPNEUMONIA [None]
  - LUNG ABSCESS [None]
